FAERS Safety Report 18256695 (Version 1)
Quarter: 2020Q3

REPORT INFORMATION
  Report Type: Spontaneous
  Country: US (occurrence: US)
  Receive Date: 20200911
  Receipt Date: 20200911
  Transmission Date: 20201103
  Serious: No
  Sender: FDA-Public Use
  Company Number: US-BAYER-2020-191173

PATIENT
  Age: 88 Year
  Sex: Female

DRUGS (3)
  1. KOREG [Concomitant]
     Active Substance: CARVEDILOL
  2. PROPAFENONE. [Concomitant]
     Active Substance: PROPAFENONE
  3. MIRALAX [Suspect]
     Active Substance: POLYETHYLENE GLYCOL 3350
     Indication: GASTROINTESTINAL DISORDER
     Dosage: UNK
     Route: 048

REACTIONS (4)
  - Lip exfoliation [Unknown]
  - Lip swelling [Unknown]
  - Lip pain [Unknown]
  - Lip disorder [Unknown]
